FAERS Safety Report 25819768 (Version 2)
Quarter: 2025Q3

REPORT INFORMATION
  Report Type: Spontaneous
  Country: EU (occurrence: EU)
  Receive Date: 20250918
  Receipt Date: 20250926
  Transmission Date: 20251020
  Serious: Yes (Death, Other)
  Sender: PURDUE
  Company Number: EU-EMA-20170628-vermaevhp-100950133

PATIENT
  Age: 44 Year
  Sex: Male

DRUGS (8)
  1. BUPRENORPHINE [Suspect]
     Active Substance: BUPRENORPHINE
     Indication: Suicide attempt
     Route: 065
  2. BUPRENORPHINE [Suspect]
     Active Substance: BUPRENORPHINE
     Indication: Suicide attempt
     Route: 065
  3. DIAZEPAM [Suspect]
     Active Substance: DIAZEPAM
     Indication: Suicide attempt
     Route: 065
  4. LYRICA [Suspect]
     Active Substance: PREGABALIN
     Indication: Suicide attempt
     Route: 065
  5. LEVETIRACETAM [Suspect]
     Active Substance: LEVETIRACETAM
     Indication: Suicide attempt
     Route: 065
  6. OXAZEPAM [Suspect]
     Active Substance: OXAZEPAM
     Indication: Suicide attempt
     Route: 065
  7. ZOPICLONE [Suspect]
     Active Substance: ZOPICLONE
     Indication: Suicide attempt
     Route: 065
  8. PREGABALIN [Suspect]
     Active Substance: PREGABALIN
     Indication: Suicide attempt
     Route: 065

REACTIONS (4)
  - Death [Fatal]
  - Completed suicide [Fatal]
  - Toxicity to various agents [Fatal]
  - Overdose [Fatal]
